FAERS Safety Report 10589510 (Version 3)
Quarter: 2014Q4

REPORT INFORMATION
  Report Type: Report from Study
  Country: US (occurrence: US)
  Receive Date: 20141118
  Receipt Date: 20141125
  Transmission Date: 20150529
  Serious: Yes (Hospitalization)
  Sender: FDA-Public Use
  Company Number: US-ROCHE-1491705

PATIENT
  Age: 66 Year
  Sex: Female
  Weight: 60.5 kg

DRUGS (14)
  1. ALBUTEROL. [Concomitant]
     Active Substance: ALBUTEROL
     Dosage: PRN
     Route: 050
     Dates: start: 1984
  2. PULMICORT TURBUHALER [Concomitant]
     Active Substance: BUDESONIDE
     Dosage: 1MG/2ML INH NEBULIZED PRN
     Route: 055
     Dates: start: 20120208
  3. PREMARIN [Concomitant]
     Active Substance: ESTROGENS, CONJUGATED
     Route: 065
     Dates: start: 197601
  4. NAPROXEN. [Concomitant]
     Active Substance: NAPROXEN
     Route: 065
     Dates: start: 201312
  5. OMALIZUMAB [Suspect]
     Active Substance: OMALIZUMAB
     Indication: ASTHMA
     Dosage: DATE OF LAST DOSE PRIOR TO SAE 16 OCT 2014
     Route: 058
     Dates: start: 20140626
  6. ADVAIR HFA [Concomitant]
     Active Substance: FLUTICASONE PROPIONATE\SALMETEROL XINAFOATE
     Dosage: 1000/100 MCG
     Route: 065
     Dates: start: 201211
  7. CYCLOBENZAPRINE [Concomitant]
     Active Substance: CYCLOBENZAPRINE
     Route: 065
     Dates: start: 2011
  8. BUPROPION XL [Concomitant]
     Active Substance: BUPROPION
     Route: 065
     Dates: start: 2006
  9. SPIRONOLACTONE/HCTZ [Concomitant]
     Dosage: 25/25 MG
     Route: 065
     Dates: start: 2012
  10. KLOR-CON [Concomitant]
     Active Substance: POTASSIUM CHLORIDE
     Route: 065
     Dates: start: 2002
  11. EPIPEN [Concomitant]
     Active Substance: EPINEPHRINE
     Route: 065
     Dates: start: 201406
  12. MIDRIN [Concomitant]
     Active Substance: ACETAMINOPHEN\DICHLORALPHENAZONE\ISOMETHEPTENE
     Dosage: 2 CAPSULES PRN
     Route: 065
     Dates: start: 1997
  13. OMEPRAZOLE. [Concomitant]
     Active Substance: OMEPRAZOLE
     Route: 065
     Dates: start: 201401
  14. LEVOTHYROXINE [Concomitant]
     Active Substance: LEVOTHYROXINE
     Route: 065
     Dates: start: 2002

REACTIONS (1)
  - Pancreatitis [Recovered/Resolved]

NARRATIVE: CASE EVENT DATE: 20141019
